FAERS Safety Report 5508829-3 (Version None)
Quarter: 2007Q4

REPORT INFORMATION
  Report Type: 
  Country: None (occurrence: None)
  Receive Date: 20071105
  Receipt Date: 20071105
  Transmission Date: 20080405
  Serious: No
  Sender: FDA-Public Use
  Company Number: None

PATIENT
  Sex: Female
  Weight: 145.151 kg

DRUGS (4)
  1. BUDEPRION XL   300 MG   TEVA [Suspect]
     Indication: DEPRESSION
     Dosage: 1 TABLET EVERY DAY PO
     Route: 048
     Dates: start: 20071012, end: 20071102
  2. ADDERALL 10 [Concomitant]
  3. AMBIEN [Concomitant]
  4. ATIVAN [Concomitant]

REACTIONS (12)
  - AGITATION [None]
  - ANXIETY [None]
  - CRYING [None]
  - DEPRESSION [None]
  - INSOMNIA [None]
  - NAUSEA [None]
  - PALPITATIONS [None]
  - PHARMACEUTICAL PRODUCT COMPLAINT [None]
  - SUICIDAL IDEATION [None]
  - THERAPEUTIC RESPONSE UNEXPECTED WITH DRUG SUBSTITUTION [None]
  - TREMOR [None]
  - VISION BLURRED [None]
